FAERS Safety Report 11281337 (Version 2)
Quarter: 2015Q3

REPORT INFORMATION
  Report Type: Spontaneous
  Country: US (occurrence: US)
  Receive Date: 20150717
  Receipt Date: 20150728
  Transmission Date: 20151125
  Serious: Yes (Other)
  Sender: FDA-Public Use
  Company Number: US-ASTRAZENECA-2014SE49038

PATIENT
  Age: 23709 Day
  Sex: Female

DRUGS (21)
  1. JANUVIA [Suspect]
     Active Substance: SITAGLIPTIN PHOSPHATE
     Indication: TYPE 2 DIABETES MELLITUS
     Route: 065
  2. JANUMET [Suspect]
     Active Substance: METFORMIN HYDROCHLORIDE\SITAGLIPTIN PHOSPHATE
     Indication: TYPE 2 DIABETES MELLITUS
     Route: 065
  3. MAGNESIUM OXIDE. [Concomitant]
     Active Substance: MAGNESIUM OXIDE
     Route: 048
  4. BYETTA [Suspect]
     Active Substance: EXENATIDE
     Indication: TYPE 2 DIABETES MELLITUS
     Route: 065
     Dates: start: 20060511
  5. GEMZAR [Concomitant]
     Active Substance: GEMCITABINE HYDROCHLORIDE
  6. BYETTA [Suspect]
     Active Substance: EXENATIDE
     Indication: TYPE 2 DIABETES MELLITUS
     Route: 065
  7. GLUCOPHAGE [Concomitant]
     Active Substance: METFORMIN HYDROCHLORIDE
     Route: 065
  8. LYRICA [Concomitant]
     Active Substance: PREGABALIN
  9. CIALIS [Concomitant]
     Active Substance: TADALAFIL
     Route: 065
  10. MOBIC [Concomitant]
     Active Substance: MELOXICAM
     Route: 065
  11. VICTOZA [Suspect]
     Active Substance: LIRAGLUTIDE
     Indication: TYPE 2 DIABETES MELLITUS
     Route: 065
  12. LEVEMIR [Concomitant]
     Active Substance: INSULIN DETEMIR
     Dosage: 100 UNIT/ML SOLUTION
  13. LORTAB [Concomitant]
     Active Substance: ACETAMINOPHEN\HYDROCODONE BITARTRATE
     Dosage: 10-500 MG EVERY 4 HOURS
     Route: 065
  14. LISINOPRIL. [Concomitant]
     Active Substance: LISINOPRIL
     Route: 065
  15. CRESTOR [Concomitant]
     Active Substance: ROSUVASTATIN CALCIUM
     Route: 065
  16. TOPAMAX [Concomitant]
     Active Substance: TOPIRAMATE
     Route: 065
  17. ROBAXIN [Concomitant]
     Active Substance: METHOCARBAMOL
     Route: 065
  18. 5-FU [Concomitant]
     Active Substance: FLUOROURACIL
  19. FERROUSUL [Concomitant]
     Route: 048
  20. ADIPEX-P [Concomitant]
     Active Substance: PHENTERMINE HYDROCHLORIDE
     Route: 065
  21. ABRAXANE [Concomitant]
     Active Substance: PACLITAXEL

REACTIONS (2)
  - Ascites [Unknown]
  - Adenocarcinoma pancreas [Unknown]

NARRATIVE: CASE EVENT DATE: 20130819
